FAERS Safety Report 14127249 (Version 2)
Quarter: 2020Q1

REPORT INFORMATION
  Report Type: Spontaneous
  Country: GB (occurrence: GB)
  Receive Date: 20171026
  Receipt Date: 20200228
  Transmission Date: 20200409
  Serious: Yes (Disabling, Other)
  Sender: FDA-Public Use
  Company Number: GB-ACCORD-060153

PATIENT
  Age: 74 Year
  Sex: Male
  Weight: 61 kg

DRUGS (5)
  1. ACETYLSALICYLIC ACID [Concomitant]
     Active Substance: ASPIRIN
     Dosage: MAY BE DISSOLVED IN WATER OR SWALLOWED WHOLE
     Dates: start: 20170609
  2. VISCOTEARS [Concomitant]
     Active Substance: CARBOMER
     Dosage: PLACE ONE DROP THREE TO FOUR TIMES DAILY. 2MG/G
     Dates: start: 20170622
  3. DONEPEZIL/DONEPEZIL HYDROCHLORIDE [Suspect]
     Active Substance: DONEPEZIL HYDROCHLORIDE
     Indication: PRODUCT USED FOR UNKNOWN INDICATION
     Route: 048
  4. HYDROXOCOBALAMIN [Concomitant]
     Active Substance: HYDROXOCOBALAMIN
     Dosage: AMPOULES,  3 TIMES A WEEK FOR 2 WEEKS THEN 3 MONTHLY. 1MG/ML
     Dates: start: 20170609
  5. ATORVASTATIN [Concomitant]
     Active Substance: ATORVASTATIN
     Indication: BLOOD CHOLESTEROL
     Dosage: AT NIGHT
     Dates: start: 20170609

REACTIONS (3)
  - Drug intolerance [Unknown]
  - Headache [Recovered/Resolved]
  - Nausea [Unknown]

NARRATIVE: CASE EVENT DATE: 20170505
